FAERS Safety Report 5384434-7 (Version None)
Quarter: 2007Q3

REPORT INFORMATION
  Report Type: 
  Country: None (occurrence: None)
  Receive Date: 20070711
  Receipt Date: 20070702
  Transmission Date: 20080115
  Serious: Yes (Hospitalization)
  Sender: FDA-Public Use
  Company Number: US-ASTRAZENECA-2006UW07580

PATIENT
  Age: 42 Year
  Sex: Female
  Weight: 70.5 kg

DRUGS (7)
  1. SEROQUEL [Suspect]
     Indication: BIPOLAR DISORDER
     Route: 048
  2. ZYPREXA [Suspect]
  3. HALDOL [Concomitant]
     Dosage: 2-3 MG
     Dates: start: 19820101
  4. RISPERDAL [Concomitant]
     Dates: start: 19940101, end: 19950101
  5. STELAZINE [Concomitant]
  6. THORAZINE [Concomitant]
     Dates: start: 19900101
  7. TRILAFON [Concomitant]

REACTIONS (2)
  - CARDIAC MURMUR [None]
  - HYPERGLYCAEMIA [None]
